FAERS Safety Report 5370369-2 (Version None)
Quarter: 2007Q2

REPORT INFORMATION
  Report Type: 
  Country: None (occurrence: None)
  Receive Date: 20070626
  Receipt Date: 20070102
  Transmission Date: 20071010
  Serious: No
  Sender: FDA-Public Use
  Company Number: US-AMGEN-US205328

PATIENT
  Sex: Male

DRUGS (6)
  1. ARANESP [Suspect]
     Indication: HEPATITIS C
     Route: 042
     Dates: start: 20061205
  2. RIBAVIRIN [Concomitant]
     Route: 065
  3. VERAPAMIL [Concomitant]
     Route: 065
  4. HYDROCHLOROTHIAZIDE [Concomitant]
     Route: 065
  5. ATENOLOL [Concomitant]
     Route: 065
  6. CATAPRES [Concomitant]
     Route: 062

REACTIONS (9)
  - BLOOD PRESSURE INCREASED [None]
  - BONE PAIN [None]
  - CHILLS [None]
  - DYSPNOEA [None]
  - HEADACHE [None]
  - INFLUENZA LIKE ILLNESS [None]
  - INJECTION SITE PAIN [None]
  - MYALGIA [None]
  - NAUSEA [None]
